FAERS Safety Report 8477907-1 (Version None)
Quarter: 2012Q2

REPORT INFORMATION
  Report Type: 
  Country: None (occurrence: None)
  Receive Date: 20120629
  Receipt Date: 20120625
  Transmission Date: 20120825
  Serious: Yes (Death, Other)
  Sender: FDA-Public Use
  Company Number: JP-PFIZER INC-2012130799

PATIENT
  Age: 66 Year
  Sex: Male

DRUGS (1)
  1. ZYVOX [Suspect]
     Indication: PNEUMONIA
     Dosage: 1200 MG, 1X/DAY
     Route: 041
     Dates: start: 20120601, end: 20120606

REACTIONS (2)
  - HYPONATRAEMIA [None]
  - PNEUMONIA [None]
